FAERS Safety Report 14145189 (Version 4)
Quarter: 2019Q4

REPORT INFORMATION
  Report Type: Spontaneous
  Country: CA (occurrence: CA)
  Receive Date: 20171031
  Receipt Date: 20191014
  Transmission Date: 20200122
  Serious: Yes (Other)
  Sender: FDA-Public Use
  Company Number: CA-PFIZER INC-2017281322

PATIENT
  Age: 63 Year
  Sex: Male

DRUGS (13)
  1. BISOPROLOL [Concomitant]
     Active Substance: BISOPROLOL
     Dosage: UNK
  2. LOPERAMIDE [Concomitant]
     Active Substance: LOPERAMIDE
     Dosage: UNK UNK, AS NEEDED
  3. BOSULIF [Suspect]
     Active Substance: BOSUTINIB MONOHYDRATE
     Indication: CHRONIC MYELOID LEUKAEMIA
     Dosage: 100 MG, 1X/DAY, PO DIE, FOR 1 WEEK
     Route: 048
     Dates: start: 20170627
  4. HCTZ [Concomitant]
     Active Substance: HYDROCHLOROTHIAZIDE
     Dosage: UNK
  5. PSYLLIUM [PLANTAGO AFRA] [Concomitant]
     Active Substance: PLANTAGO AFRA SEED
     Dosage: UNK UNK, AS NEEDED
  6. BOSULIF [Suspect]
     Active Substance: BOSUTINIB MONOHYDRATE
     Dosage: 200 MG, 1X/DAY, PO DIE, FOR 1 WEEK
     Route: 048
  7. BOSULIF [Suspect]
     Active Substance: BOSUTINIB MONOHYDRATE
     Dosage: 400 MG, 1X/DAY, PO DIE FOR 4 WEEKS
     Route: 048
     Dates: end: 201903
  8. METFORMIN [Concomitant]
     Active Substance: METFORMIN HYDROCHLORIDE
     Dosage: UNK
  9. CIALIS [Concomitant]
     Active Substance: TADALAFIL
     Dosage: UNK UNK, AS NEEDED
  10. ATIVAN [Concomitant]
     Active Substance: LORAZEPAM
     Dosage: UNK UNK, AS NEEDED
  11. BOSULIF [Suspect]
     Active Substance: BOSUTINIB MONOHYDRATE
     Dosage: 300 MG, 1X/DAY, PO DIE, FOR 1 WEEK
     Route: 048
  12. TRANDOLAPRIL. [Concomitant]
     Active Substance: TRANDOLAPRIL
     Dosage: UNK
  13. FLECAINIDE [Concomitant]
     Active Substance: FLECAINIDE
     Dosage: UNK

REACTIONS (8)
  - Renal disorder [Unknown]
  - Scab [Unknown]
  - Palpitations [Unknown]
  - Hypercreatininaemia [Unknown]
  - Bradycardia [Not Recovered/Not Resolved]
  - Hypertension [Unknown]
  - Skin discolouration [Unknown]
  - Pain [Unknown]
